FAERS Safety Report 17445446 (Version 2)
Quarter: 2020Q1

REPORT INFORMATION
  Report Type: Report from Study
  Country: CO (occurrence: CO)
  Receive Date: 20200221
  Receipt Date: 20200302
  Transmission Date: 20200409
  Serious: Yes (Death, Hospitalization)
  Sender: FDA-Public Use
  Company Number: NVSC2020CO045124

PATIENT
  Age: 90 Year
  Sex: Male

DRUGS (1)
  1. VOTRIENT [Suspect]
     Active Substance: PAZOPANIB HYDROCHLORIDE
     Indication: METASTATIC RENAL CELL CARCINOMA
     Dosage: 800 MG
     Route: 048

REACTIONS (5)
  - Death [Fatal]
  - Eating disorder [Unknown]
  - Kidney infection [Unknown]
  - General physical health deterioration [Unknown]
  - Pneumonia [Unknown]

NARRATIVE: CASE EVENT DATE: 20200223
